FAERS Safety Report 25306637 (Version 1)
Quarter: 2025Q2

REPORT INFORMATION
  Report Type: Report from Study
  Country: CA (occurrence: CA)
  Receive Date: 20250513
  Receipt Date: 20250513
  Transmission Date: 20250716
  Serious: Yes (Death, Other)
  Sender: DR REDDYS
  Company Number: CA-DRL-USA-CAN/2025/05/006823

PATIENT
  Sex: Female

DRUGS (1)
  1. AZACITIDINE [Suspect]
     Active Substance: AZACITIDINE
     Indication: Angioimmunoblastic T-cell lymphoma stage III
     Dosage: DOSE OF 75 MG/M^2 FREQUENCY DAILY FOR 7 DAYS EVERY 28 DAY
     Route: 065

REACTIONS (1)
  - Death [Fatal]
